FAERS Safety Report 24426368 (Version 1)
Quarter: 2024Q4

REPORT INFORMATION
  Report Type: Spontaneous
  Country: US (occurrence: US)
  Receive Date: 20241011
  Receipt Date: 20241011
  Transmission Date: 20250115
  Serious: Yes (Life-Threatening, Hospitalization)
  Sender: MICRO LABS
  Company Number: US-MLMSERVICE-20240923-PI202457-00217-1

PATIENT
  Age: 62 Year
  Sex: Male

DRUGS (1)
  1. METFORMIN [Suspect]
     Active Substance: METFORMIN HYDROCHLORIDE
     Indication: Diabetes mellitus

REACTIONS (4)
  - Toxicity to various agents [Unknown]
  - Respiratory failure [Unknown]
  - Distributive shock [Unknown]
  - Lactic acidosis [Unknown]
